FAERS Safety Report 9720482 (Version 1)
Quarter: 2013Q4

REPORT INFORMATION
  Report Type: Spontaneous
  Country: US (occurrence: US)
  Receive Date: 20131129
  Receipt Date: 20131129
  Transmission Date: 20140711
  Serious: Yes (Hospitalization, Other)
  Sender: FDA-Public Use
  Company Number: US-JNJFOC-20131112138

PATIENT
  Sex: Male
  Weight: 90.72 kg

DRUGS (3)
  1. INVEGA SUSTENNA [Suspect]
     Indication: SCHIZOPHRENIA
     Route: 030
     Dates: start: 201303, end: 201304
  2. ATIVAN [Concomitant]
     Indication: FEELING OF RELAXATION
     Route: 065
     Dates: start: 2009
  3. ATIVAN [Concomitant]
     Indication: SLEEP DISORDER
     Route: 065
     Dates: start: 2009

REACTIONS (2)
  - Heart rate increased [Unknown]
  - Parkinsonism [Recovering/Resolving]
